FAERS Safety Report 13539651 (Version 1)
Quarter: 2017Q2

REPORT INFORMATION
  Report Type: Spontaneous
  Country: FR (occurrence: FR)
  Receive Date: 20170512
  Receipt Date: 20170512
  Transmission Date: 20170830
  Serious: Yes (Hospitalization, Other)
  Sender: FDA-Public Use
  Company Number: FR-BRISTOL-MYERS SQUIBB COMPANY-BMS-2017-040612

PATIENT
  Sex: Male

DRUGS (1)
  1. ELIQUIS [Suspect]
     Active Substance: APIXABAN
     Indication: CEREBROVASCULAR ACCIDENT PROPHYLAXIS
     Dosage: 2.5 MG, UNK
     Route: 065

REACTIONS (9)
  - Shock haemorrhagic [Unknown]
  - Extravasation blood [Unknown]
  - Haemoglobin decreased [Unknown]
  - Transfusion [Unknown]
  - Lung disorder [Unknown]
  - Therapeutic embolisation [Unknown]
  - Acute kidney injury [Unknown]
  - Haemorrhage [Unknown]
  - Muscle haemorrhage [Unknown]
